FAERS Safety Report 9001679 (Version 3)
Quarter: 2013Q4

REPORT INFORMATION
  Report Type: Report from Study
  Country: CA (occurrence: CA)
  Receive Date: 20130107
  Receipt Date: 20131112
  Transmission Date: 20140711
  Serious: Yes (Other)
  Sender: FDA-Public Use
  Company Number: PHHY2011CA53592

PATIENT
  Sex: Female

DRUGS (7)
  1. TASIGNA [Suspect]
     Indication: CHRONIC MYELOID LEUKAEMIA
     Dosage: 400 MG, BID
     Route: 048
     Dates: start: 201003, end: 20110412
  2. TASIGNA [Suspect]
     Dosage: 400 MG, QAM AND 200 MG, QHS
     Route: 048
  3. ATENOLOL [Concomitant]
     Dosage: UNK UKN, UNK
  4. ACTONEL [Concomitant]
     Dosage: UNK
  5. CALCIVIT D [Concomitant]
  6. PAXIL [Concomitant]
     Dosage: 20 MG, QD
     Route: 048
  7. ANTIBIOTICS [Concomitant]

REACTIONS (10)
  - Movement disorder [Recovered/Resolved]
  - Myalgia [Recovered/Resolved]
  - Insomnia [Recovered/Resolved]
  - Dizziness [Recovered/Resolved]
  - Muscle spasms [Recovered/Resolved]
  - Pain in extremity [Recovering/Resolving]
  - Infection [Recovering/Resolving]
  - Skin lesion [Unknown]
  - Urticaria [Recovering/Resolving]
  - Pruritus [Unknown]
